FAERS Safety Report 5463252-5 (Version None)
Quarter: 2007Q3

REPORT INFORMATION
  Report Type: 
  Country: None (occurrence: None)
  Receive Date: 20070920
  Receipt Date: 20070917
  Transmission Date: 20080115
  Serious: Yes (Death)
  Sender: FDA-Public Use
  Company Number: DE-JNJFOC-20070902918

PATIENT
  Sex: Female

DRUGS (5)
  1. HALDOL [Suspect]
     Indication: DRUG USE FOR UNKNOWN INDICATION
     Route: 048
  2. TAVOR [Interacting]
     Indication: DRUG USE FOR UNKNOWN INDICATION
     Route: 048
  3. GLIANIMON [Interacting]
     Indication: DRUG USE FOR UNKNOWN INDICATION
     Route: 048
  4. AKINETON [Interacting]
     Indication: DRUG USE FOR UNKNOWN INDICATION
     Route: 048
  5. PLANUM [Interacting]
     Indication: DRUG USE FOR UNKNOWN INDICATION
     Route: 048

REACTIONS (9)
  - ADVERSE DRUG REACTION [None]
  - COMA [None]
  - COMPLETED SUICIDE [None]
  - DISTURBANCE IN ATTENTION [None]
  - DRUG INTERACTION [None]
  - DYSKINESIA [None]
  - ENURESIS [None]
  - GAIT DISTURBANCE [None]
  - SCREAMING [None]
